FAERS Safety Report 5497997-8 (Version None)
Quarter: 2007Q4

REPORT INFORMATION
  Report Type: 
  Country: None (occurrence: None)
  Receive Date: 20071025
  Receipt Date: 20071015
  Transmission Date: 20080405
  Serious: Yes (Other)
  Sender: FDA-Public Use
  Company Number: AU-PFIZER INC-2007065600

PATIENT
  Sex: Female
  Weight: 84 kg

DRUGS (14)
  1. LIPITOR [Suspect]
     Indication: HYPERCHOLESTEROLAEMIA
     Dosage: DAILY DOSE:10MG
     Route: 048
  2. DIGOXIN [Concomitant]
  3. WARFARIN SODIUM [Concomitant]
     Dosage: TEXT:5MG, 1MG, 3MG DAILY AS DIRECTED
  4. ADVANTAN [Concomitant]
     Dosage: FREQ:DAILY
  5. AQUEOUS CREAM [Concomitant]
  6. ASMOL [Concomitant]
     Dosage: TEXT:100MCG/DOSE, 2 PUFFS EVERY 4 HOURS
  7. ATIVAN [Concomitant]
  8. BETAMETHASONE VALERATE [Concomitant]
  9. CELESTONE TAB [Concomitant]
  10. FERROGRAD C [Concomitant]
     Dosage: TEXT:325MG/500MG-FREQ:IN MORNING
  11. FLUTICASONE PROPIONATE [Concomitant]
     Dosage: TEXT:250MCG, 2 PUFFS TWICE DAILY
  12. NASONEX [Concomitant]
     Dosage: TEXT:50MCG, 2 SPRAYS DAILY
     Route: 045
  13. POLARAMINE [Concomitant]
  14. POLYVINYL ALCOHOL [Concomitant]
     Dosage: TEXT:3.0% ONE DROP WHEN NECESSARY
     Route: 050

REACTIONS (6)
  - DRY SKIN [None]
  - HEART VALVE REPLACEMENT [None]
  - HYPERSENSITIVITY [None]
  - PRURITUS [None]
  - PRURITUS GENERALISED [None]
  - URTICARIA [None]
